FAERS Safety Report 13827243 (Version 1)
Quarter: 2017Q3

REPORT INFORMATION
  Report Type: Spontaneous
  Country: US (occurrence: US)
  Receive Date: 20170802
  Receipt Date: 20170802
  Transmission Date: 20171127
  Serious: No
  Sender: FDA-Public Use
  Company Number: US-ROCHE-658699

PATIENT
  Age: 61 Year
  Sex: Female

DRUGS (3)
  1. BONIVA [Suspect]
     Active Substance: IBANDRONATE SODIUM
     Indication: PRODUCT USED FOR UNKNOWN INDICATION
     Dosage: DOSE: 1 TAB/MONTH
     Route: 048
  2. ASACOL [Concomitant]
     Active Substance: MESALAMINE
     Route: 065
  3. DIOVAN [Concomitant]
     Active Substance: VALSARTAN
     Route: 065

REACTIONS (4)
  - Chest discomfort [Unknown]
  - Dysphonia [Unknown]
  - Dyspepsia [Unknown]
  - Productive cough [Unknown]

NARRATIVE: CASE EVENT DATE: 200907
